FAERS Safety Report 25908534 (Version 1)
Quarter: 2025Q4

REPORT INFORMATION
  Report Type: Spontaneous
  Country: EU (occurrence: EU)
  Receive Date: 20251010
  Receipt Date: 20251010
  Transmission Date: 20260117
  Serious: Yes (Other)
  Sender: MERCK SHARP & DOHME LLC
  Company Number: EU-009507513-2336942

PATIENT
  Sex: Female

DRUGS (2)
  1. PEMBROLIZUMAB [Suspect]
     Active Substance: PEMBROLIZUMAB
     Indication: Uveal melanoma
     Dosage: ONSET OF TREATMENT BETWEEN 2021- 2023
  2. LENVATINIB [Suspect]
     Active Substance: LENVATINIB
     Indication: Uveal melanoma
     Dosage: ONSET OF TREATMENT BETWEEN 2021- 2023

REACTIONS (2)
  - Gastrointestinal toxicity [Unknown]
  - Off label use [Unknown]
